FAERS Safety Report 9778054 (Version 1)
Quarter: 2013Q4

REPORT INFORMATION
  Report Type: Spontaneous
  Country: FR (occurrence: FR)
  Receive Date: 20131223
  Receipt Date: 20131223
  Transmission Date: 20140711
  Serious: Yes (Other)
  Sender: FDA-Public Use
  Company Number: FR-ASTRAZENECA-2013SE92409

PATIENT
  Age: 789 Month
  Sex: Female

DRUGS (1)
  1. HYTACAND [Suspect]
     Indication: HYPERTENSION
     Dosage: 16/12.5 MG DAILY
     Route: 048
     Dates: end: 201308

REACTIONS (3)
  - Pulmonary fibrosis [Recovering/Resolving]
  - Bronchiectasis [Unknown]
  - Cough [Recovered/Resolved]
